FAERS Safety Report 13645233 (Version 1)
Quarter: 2017Q2

REPORT INFORMATION
  Report Type: Spontaneous
  Country: US (occurrence: US)
  Receive Date: 20170612
  Receipt Date: 20170612
  Transmission Date: 20170830
  Serious: No
  Sender: FDA-Public Use
  Company Number: US-ROCHE-1247553

PATIENT
  Sex: Female
  Weight: 63.56 kg

DRUGS (1)
  1. XELODA [Suspect]
     Active Substance: CAPECITABINE
     Indication: ADENOCARCINOMA OF COLON
     Route: 065
     Dates: end: 20130703

REACTIONS (4)
  - Diarrhoea [Recovering/Resolving]
  - Drug ineffective [Unknown]
  - Feeding disorder [Recovering/Resolving]
  - Fatigue [Recovering/Resolving]
